FAERS Safety Report 5036592-1 (Version None)
Quarter: 2006Q2

REPORT INFORMATION
  Report Type: 
  Country: None (occurrence: None)
  Receive Date: 20060531
  Receipt Date: 20060421
  Transmission Date: 20061013
  Serious: No
  Sender: FDA-Public Use
  Company Number: PHEH2006US04240

PATIENT
  Age: 19 Year
  Sex: Female
  Weight: 75.3 kg

DRUGS (4)
  1. EXJADE [Suspect]
     Indication: BLOOD IRON INCREASED
     Dosage: 1500 MG, QD, ORAL
     Route: 048
     Dates: start: 20060321
  2. VICODIN [Concomitant]
  3. IBUPROFEN [Concomitant]
  4. EXTRA STRENGTH TYLENOL [Concomitant]

REACTIONS (3)
  - PRURITUS [None]
  - RASH GENERALISED [None]
  - SKIN IRRITATION [None]
